FAERS Safety Report 11301397 (Version 1)
Quarter: 2015Q3

REPORT INFORMATION
  Report Type: Spontaneous
  Country: US (occurrence: US)
  Receive Date: 20150722
  Receipt Date: 20150722
  Transmission Date: 20151125
  Serious: No
  Sender: FDA-Public Use
  Company Number: US-ELI_LILLY_AND_COMPANY-US201004001872

PATIENT
  Sex: Female
  Weight: 29.57 kg

DRUGS (4)
  1. CELEXA [Concomitant]
     Active Substance: CITALOPRAM HYDROBROMIDE
     Dosage: 40 MG, EACH EVENING
  2. HUMATROPE [Suspect]
     Active Substance: SOMATROPIN
     Dosage: UNK, DAILY (1/D)
  3. HUMATROPE [Suspect]
     Active Substance: SOMATROPIN
     Dosage: UNK, DAILY (1/D)
     Dates: start: 2009
  4. RISPERDAL [Concomitant]
     Active Substance: RISPERIDONE
     Dosage: 1 MG, EACH EVENING

REACTIONS (4)
  - Failure to thrive [Unknown]
  - Gastrointestinal tube insertion [Not Recovered/Not Resolved]
  - Malnutrition [Unknown]
  - Weight decreased [Unknown]
